FAERS Safety Report 25746195 (Version 2)
Quarter: 2025Q3

REPORT INFORMATION
  Report Type: Report from Study
  Country: JP (occurrence: JP)
  Receive Date: 20250901
  Receipt Date: 20250918
  Transmission Date: 20251020
  Serious: Yes (Hospitalization, Other)
  Sender: ASTELLAS
  Company Number: JP-ASTELLAS-2022JP016136

PATIENT
  Age: 74 Year
  Sex: Female
  Weight: 54 kg

DRUGS (10)
  1. PADCEV [Suspect]
     Active Substance: ENFORTUMAB VEDOTIN-EJFV
     Indication: Ureteric cancer
     Route: 042
     Dates: start: 20220511, end: 20220518
  2. PADCEV [Suspect]
     Active Substance: ENFORTUMAB VEDOTIN-EJFV
     Route: 042
     Dates: start: 20220614, end: 20230110
  3. LIPITOR [Concomitant]
     Active Substance: ATORVASTATIN CALCIUM
     Indication: Dyslipidaemia
     Route: 048
  4. AMARYL [Concomitant]
     Active Substance: GLIMEPIRIDE
     Indication: Diabetes mellitus
     Route: 048
  5. METFORMIN HYDROCHLORIDE\VILDAGLIPTIN [Concomitant]
     Active Substance: METFORMIN HYDROCHLORIDE\VILDAGLIPTIN
     Indication: Diabetes mellitus
     Dosage: AFTER BREAKFAST AND EVENING
     Route: 048
  6. TENORMIN [Concomitant]
     Active Substance: ATENOLOL
     Indication: Hypertension
     Route: 048
  7. HYDROCHLOROTHIAZIDE\TELMISARTAN [Concomitant]
     Active Substance: HYDROCHLOROTHIAZIDE\TELMISARTAN
     Indication: Hypertension
     Route: 048
  8. MYSER [Concomitant]
     Indication: Rash erythematous
     Route: 061
     Dates: start: 20220515, end: 20220516
  9. DIFLORASONE DIACETATE [Concomitant]
     Active Substance: DIFLORASONE DIACETATE
     Indication: Rash erythematous
     Route: 061
     Dates: start: 20220517, end: 20220531
  10. ALLELOCK [Concomitant]
     Active Substance: OLOPATADINE HYDROCHLORIDE
     Indication: Rash erythematous
     Route: 048
     Dates: start: 20220517, end: 20220531

REACTIONS (5)
  - Rash erythematous [Recovering/Resolving]
  - Rash pustular [Recovered/Resolved]
  - Drug eruption [Recovered/Resolved]
  - Erysipelas [Recovered/Resolved]
  - Pruritus [Recovered/Resolved]

NARRATIVE: CASE EVENT DATE: 20220515
